FAERS Safety Report 4447315-9 (Version None)
Quarter: 2004Q3

REPORT INFORMATION
  Report Type: 
  Country: None (occurrence: None)
  Receive Date: 20040813
  Receipt Date: 20040420
  Transmission Date: 20050211
  Serious: No
  Sender: FDA-Public Use
  Company Number: S04-USA-02928-01

PATIENT
  Sex: Male

DRUGS (5)
  1. NAMENDA [Suspect]
     Dosage: 20 MG QD PO
     Route: 048
     Dates: start: 20040101
  2. NAMENDA [Concomitant]
     Dosage: 5 MG QD PO
     Route: 048
     Dates: start: 20040201, end: 20040101
  3. NAMENDA [Suspect]
     Dosage: 10 MG QD PO
     Route: 048
     Dates: start: 20040101, end: 20040101
  4. NAMENDA [Suspect]
     Dosage: 15 MG QD  PO
     Route: 048
     Dates: start: 20040101, end: 20040101
  5. ARICEPT [Concomitant]

REACTIONS (2)
  - RED BLOOD CELL COUNT DECREASED [None]
  - WHITE BLOOD CELL COUNT INCREASED [None]
